FAERS Safety Report 9365897 (Version 1)
Quarter: 2013Q2

REPORT INFORMATION
  Report Type: Spontaneous
  Country: US (occurrence: US)
  Receive Date: 20130625
  Receipt Date: 20130625
  Transmission Date: 20140414
  Serious: Yes (Other)
  Sender: FDA-Public Use
  Company Number: US-RANBAXY-2013US-70564

PATIENT
  Age: 24 Year
  Sex: Male

DRUGS (10)
  1. RISPERIDONE [Suspect]
     Indication: PSYCHOTIC DISORDER
     Dosage: 2 MG, BID
     Route: 065
  2. SERTRALINE [Suspect]
     Indication: PSYCHOTIC DISORDER
     Dosage: 200 MG, QD
     Route: 065
  3. SERTRALINE [Suspect]
     Indication: PSYCHOTIC DISORDER
     Dosage: 250MG/DAY
     Route: 065
  4. QUETIAPINE XR [Suspect]
     Indication: PSYCHOTIC DISORDER
     Dosage: 500 MG, QD
     Route: 065
  5. ACETYLCYSTEINE [Concomitant]
     Indication: PRODUCT USED FOR UNKNOWN INDICATION
     Dosage: UNK
     Route: 065
  6. DOCUSATE SODIUM [Concomitant]
     Indication: PRODUCT USED FOR UNKNOWN INDICATION
     Route: 065
  7. ESZOPICLONE [Concomitant]
     Indication: PRODUCT USED FOR UNKNOWN INDICATION
     Dosage: UNK
     Route: 065
  8. GABAPENTIN [Concomitant]
     Indication: PRODUCT USED FOR UNKNOWN INDICATION
     Dosage: UNK
     Route: 065
  9. LAMOTRIGINE [Concomitant]
     Indication: PRODUCT USED FOR UNKNOWN INDICATION
     Dosage: UNK
     Route: 065
  10. POLYCARBOPHIL CALCIUM [Concomitant]
     Indication: PRODUCT USED FOR UNKNOWN INDICATION
     Dosage: UNK
     Route: 065

REACTIONS (6)
  - Restlessness [Unknown]
  - Musculoskeletal stiffness [Unknown]
  - Constipation [Recovering/Resolving]
  - Hypomania [Recovered/Resolved]
  - Weight increased [Recovering/Resolving]
  - Anxiety [Unknown]
